FAERS Safety Report 5140648-2 (Version None)
Quarter: 2006Q4

REPORT INFORMATION
  Report Type: 
  Country: None (occurrence: None)
  Receive Date: 20061031
  Receipt Date: 20061026
  Transmission Date: 20070319
  Serious: Yes (Hospitalization)
  Sender: FDA-Public Use
  Company Number: JP-BOEHRINGER INGELHEIM PHARMACEUTICALS, INC.-2006-BP-12631NB

PATIENT
  Age: 87 Year

DRUGS (1)
  1. SPIRIVA [Suspect]
     Route: 055

REACTIONS (1)
  - CARDIAC FAILURE [None]
